FAERS Safety Report 23111740 (Version 2)
Quarter: 2023Q4

REPORT INFORMATION
  Report Type: Spontaneous
  Country: BR (occurrence: BR)
  Receive Date: 20231026
  Receipt Date: 20231030
  Transmission Date: 20240110
  Serious: Yes (Other)
  Sender: FDA-Public Use
  Company Number: BR-AMERICAN REGENT INC-2023002448

PATIENT
  Sex: Female
  Weight: 66 kg

DRUGS (17)
  1. VENOFER [Suspect]
     Active Substance: IRON SUCROSE
     Indication: Mineral supplementation
     Dosage: 3 DOSAGE FORMS, SINGLE DOSE
     Dates: start: 20131115, end: 20131115
  2. VENOFER [Suspect]
     Active Substance: IRON SUCROSE
     Dosage: 1 IN 1 Y
     Dates: start: 201311, end: 2016
  3. VENOFER [Suspect]
     Active Substance: IRON SUCROSE
     Dosage: 1 IN 6 M
     Dates: start: 2016, end: 2019
  4. NIFEDIPINE [Concomitant]
     Active Substance: NIFEDIPINE
     Indication: Prophylaxis
     Dosage: 80 MG (20 MG, 1 IN 6 HR)
     Route: 048
     Dates: start: 2019
  5. NIFEDIPINE [Concomitant]
     Active Substance: NIFEDIPINE
     Indication: Vasodilatation
  6. ENALAPRIL [Concomitant]
     Active Substance: ENALAPRIL
     Indication: Cardiovascular event prophylaxis
     Dosage: 2 DOSAGE FORMS (1 DOSAGE FORMS, 1 IN 12 HR)
     Route: 048
     Dates: start: 2019
  7. TRAZODONE [Concomitant]
     Active Substance: TRAZODONE HYDROCHLORIDE
     Indication: Hypotonia
     Dosage: 1 DOSAGE FORMS, AT NIGHT
     Route: 048
  8. TRAZODONE [Concomitant]
     Active Substance: TRAZODONE HYDROCHLORIDE
     Indication: Arthralgia
  9. PHENYTOIN [Concomitant]
     Active Substance: PHENYTOIN
     Indication: Seizure prophylaxis
     Dosage: 1 IN 1 D
     Route: 048
  10. DULOXETINE [Concomitant]
     Active Substance: DULOXETINE
     Indication: Depression
     Dosage: 1 DOSAGE FORMS, IN THE MORNING
     Route: 048
  11. DULOXETINE [Concomitant]
     Active Substance: DULOXETINE
     Indication: Prophylaxis
  12. CHOLECALCIFEROL [Concomitant]
     Active Substance: CHOLECALCIFEROL
     Indication: Product used for unknown indication
     Dosage: 1 IN 1 D
     Route: 048
  13. ACETAMINOPHEN [Concomitant]
     Active Substance: ACETAMINOPHEN
     Indication: Pain
     Dosage: IF NECESSARY
     Route: 065
  14. LUFTAL [SIMETICONE] [Concomitant]
     Indication: Product used for unknown indication
     Dosage: UNK
     Route: 065
  15. HERBALS\LINSEED OIL [Concomitant]
     Active Substance: HERBALS\LINSEED OIL
     Indication: Product used for unknown indication
     Dosage: UNK
     Route: 065
  16. FOLIC ACID [Concomitant]
     Active Substance: FOLIC ACID
     Indication: Product used for unknown indication
     Dosage: UNK
     Route: 065
  17. PREGABALIN [Concomitant]
     Active Substance: PREGABALIN
     Indication: Arthralgia
     Dosage: 1 IN 1 D
     Route: 048

REACTIONS (9)
  - Systemic scleroderma [Not Recovered/Not Resolved]
  - Sjogren^s syndrome [Not Recovered/Not Resolved]
  - Benign breast neoplasm [Not Recovered/Not Resolved]
  - Tooth loss [Not Recovered/Not Resolved]
  - Raynaud^s phenomenon [Not Recovered/Not Resolved]
  - Therapy cessation [Unknown]
  - Constipation [Not Recovered/Not Resolved]
  - Diarrhoea [Not Recovered/Not Resolved]
  - Off label use [Unknown]

NARRATIVE: CASE EVENT DATE: 20131101
